FAERS Safety Report 14980574 (Version 1)
Quarter: 2018Q2

REPORT INFORMATION
  Report Type: Spontaneous
  Country: GE (occurrence: GE)
  Receive Date: 20180606
  Receipt Date: 20180606
  Transmission Date: 20180711
  Serious: Yes (Hospitalization, Disabling, Other)
  Sender: FDA-Public Use
  Company Number: PHHY2018GE010936

PATIENT
  Age: 53 Year
  Sex: Male
  Weight: 68 kg

DRUGS (17)
  1. DELAMANID [Suspect]
     Active Substance: DELAMANID
     Dosage: 200 MG, QD
     Route: 048
     Dates: start: 20170428, end: 20171013
  2. CLOFAZIMINE [Suspect]
     Active Substance: CLOFAZIMINE
     Indication: TUBERCULOSIS
     Dosage: 100 MG, QD
     Route: 048
     Dates: start: 20170508, end: 20171213
  3. DELAMANID [Suspect]
     Active Substance: DELAMANID
     Dosage: 200 MG, QD
     Route: 048
     Dates: start: 20170425, end: 20170427
  4. CAPREOMYCIN [Suspect]
     Active Substance: CAPREOMYCIN
     Indication: TUBERCULOSIS
     Dosage: 1000 MG, QD
     Route: 030
     Dates: start: 20170302, end: 20170320
  5. KANAMYCIN [Suspect]
     Active Substance: KANAMYCIN\KANAMYCIN A SULFATE
     Indication: TUBERCULOSIS
     Dosage: 1 OT, QD
     Route: 030
     Dates: start: 20170503, end: 20171213
  6. B6 [Suspect]
     Active Substance: PYRIDOXINE HYDROCHLORIDE
     Indication: PRODUCT USED FOR UNKNOWN INDICATION
     Dosage: 150 MG, QD
     Route: 048
     Dates: start: 20170303, end: 20171213
  7. CAPREOMYCIN [Suspect]
     Active Substance: CAPREOMYCIN
     Dosage: 1000 MG, QD
     Route: 030
     Dates: start: 20170424, end: 20170426
  8. PROTIONAMIDE [Suspect]
     Active Substance: PROTIONAMIDE
     Indication: TUBERCULOSIS
     Dosage: 750 MG, QD
     Route: 048
     Dates: start: 20170302, end: 20170320
  9. METFORMINE [Concomitant]
     Active Substance: METFORMIN HYDROCHLORIDE
     Indication: DIABETES MELLITUS
     Route: 065
  10. CYCLOSERINE. [Suspect]
     Active Substance: CYCLOSERINE
     Dosage: 750 MG, QD
     Route: 048
     Dates: start: 20170608, end: 20171213
  11. DELAMANID [Suspect]
     Active Substance: DELAMANID
     Indication: TUBERCULOSIS
     Dosage: 200 MG, QD
     Route: 048
     Dates: start: 20170302, end: 20170320
  12. PAS [Suspect]
     Active Substance: AMINOSALICYLIC ACID
     Indication: TUBERCULOSIS
     Dosage: 800 MG, QD
     Route: 065
     Dates: start: 20170426
  13. LINEZOLID. [Suspect]
     Active Substance: LINEZOLID
     Indication: TUBERCULOSIS
     Dosage: 600 MG, QD
     Route: 048
     Dates: start: 20170302, end: 20170320
  14. PAS [Suspect]
     Active Substance: AMINOSALICYLIC ACID
     Dosage: 8000 MG, UNK
     Route: 065
     Dates: start: 20170428, end: 20171213
  15. PAS [Suspect]
     Active Substance: AMINOSALICYLIC ACID
     Dosage: 8000 MG, UNK
     Route: 065
     Dates: start: 20170427
  16. LINEZOLID. [Suspect]
     Active Substance: LINEZOLID
     Dosage: 300 MG, QD
     Route: 048
     Dates: start: 20170428, end: 20170502
  17. CYCLOSERINE. [Suspect]
     Active Substance: CYCLOSERINE
     Indication: TUBERCULOSIS
     Dosage: 750 MG, QD
     Route: 048
     Dates: start: 20170302, end: 20170320

REACTIONS (12)
  - Blood pressure increased [Unknown]
  - Insomnia [Unknown]
  - Headache [Recovered/Resolved]
  - Pulmonary fibrosis [Unknown]
  - Toxic neuropathy [Unknown]
  - Peptic ulcer [Unknown]
  - Neurotoxicity [Unknown]
  - Neuralgia [Unknown]
  - Gastritis [Unknown]
  - Intraocular pressure increased [Recovering/Resolving]
  - Optic neuritis [Unknown]
  - Vision blurred [Unknown]

NARRATIVE: CASE EVENT DATE: 20170309
